FAERS Safety Report 14899268 (Version 1)
Quarter: 2018Q2

REPORT INFORMATION
  Report Type: Report from Study
  Country: US (occurrence: US)
  Receive Date: 20180516
  Receipt Date: 20180516
  Transmission Date: 20180711
  Serious: No
  Sender: FDA-Public Use
  Company Number: PHEH2018US018271

PATIENT
  Age: 29 Year
  Sex: Male

DRUGS (1)
  1. COSENTYX [Suspect]
     Active Substance: SECUKINUMAB
     Indication: GUTTATE PSORIASIS
     Dosage: 300 MG, QMO
     Route: 058
     Dates: start: 20180206

REACTIONS (7)
  - Glossodynia [Unknown]
  - Thirst [Unknown]
  - Sinus pain [Unknown]
  - Dry mouth [Recovering/Resolving]
  - Gastroenteritis viral [Recovered/Resolved]
  - Coating in mouth [Unknown]
  - Ill-defined disorder [Unknown]

NARRATIVE: CASE EVENT DATE: 20180424
